FAERS Safety Report 5559784-1 (Version None)
Quarter: 2007Q4

REPORT INFORMATION
  Report Type: 
  Country: None (occurrence: None)
  Receive Date: 20071214
  Receipt Date: 20071012
  Transmission Date: 20080405
  Serious: No
  Sender: FDA-Public Use
  Company Number: US-ABBOTT-07P-163-0420935-00

PATIENT
  Sex: Female
  Weight: 86.26 kg

DRUGS (4)
  1. HUMIRA [Suspect]
     Indication: CROHN'S DISEASE
     Route: 058
     Dates: start: 20070701
  2. METHOTREXATE [Concomitant]
     Indication: CROHN'S DISEASE
     Route: 048
  3. CIPROFLOXACIN [Concomitant]
     Indication: ABSCESS
  4. METRONIDAZOLE HCL [Concomitant]
     Indication: ABSCESS

REACTIONS (2)
  - OEDEMA PERIPHERAL [None]
  - TENDONITIS [None]
